FAERS Safety Report 6811476-4 (Version None)
Quarter: 2010Q2

REPORT INFORMATION
  Report Type: 
  Country: None (occurrence: None)
  Receive Date: 20100629
  Receipt Date: 20100629
  Transmission Date: 20101027
  Serious: Yes (Hospitalization)
  Sender: FDA-Public Use
  Company Number: None

PATIENT
  Age: 56 Year
  Sex: Male
  Weight: 90.7194 kg

DRUGS (1)
  1. SIMVASTATIN 80 GENERIC [Suspect]
     Indication: BLOOD CHOLESTEROL INCREASED
     Dosage: 80 DAILY OROPHARINGEAL
     Route: 049
     Dates: start: 20090601, end: 20100619

REACTIONS (1)
  - RHABDOMYOLYSIS [None]
